FAERS Safety Report 11908528 (Version 1)
Quarter: 2016Q1

REPORT INFORMATION
  Report Type: Spontaneous
  Country: FR (occurrence: FR)
  Receive Date: 20160111
  Receipt Date: 20160111
  Transmission Date: 20160526
  Serious: Yes (Hospitalization)
  Sender: FDA-Public Use
  Company Number: FR-VIIV HEALTHCARE LIMITED-FR2016GSK002416

PATIENT
  Sex: Female

DRUGS (2)
  1. LOPINAVIR [Suspect]
     Active Substance: LOPINAVIR
     Indication: HIV INFECTION
     Dosage: UNK
     Dates: start: 20090113, end: 20090623
  2. COMBIVIR [Suspect]
     Active Substance: LAMIVUDINE\ZIDOVUDINE
     Indication: HIV INFECTION
     Dosage: UNK
     Dates: start: 20090113, end: 20090623

REACTIONS (1)
  - Metrorrhagia [Unknown]

NARRATIVE: CASE EVENT DATE: 20090617
